FAERS Safety Report 6707261-4 (Version None)
Quarter: 2010Q2

REPORT INFORMATION
  Report Type: 
  Country: None (occurrence: None)
  Receive Date: 20100503
  Receipt Date: 20090702
  Transmission Date: 20101027
  Serious: No
  Sender: FDA-Public Use
  Company Number: US-ASTRAZENECA-2009UW18521

PATIENT
  Age: 60 Year
  Sex: Female
  Weight: 86.2 kg

DRUGS (3)
  1. NEXIUM [Suspect]
     Route: 048
  2. TOPROL-XL [Concomitant]
     Route: 048
  3. BENICAR [Concomitant]

REACTIONS (2)
  - OESOPHAGOGASTRODUODENOSCOPY [None]
  - VOMITING [None]
